FAERS Safety Report 9705198 (Version 1)
Quarter: 2013Q4

REPORT INFORMATION
  Report Type: Spontaneous
  Country: US (occurrence: US)
  Receive Date: 20131122
  Receipt Date: 20131122
  Transmission Date: 20140711
  Serious: Yes (Other)
  Sender: FDA-Public Use
  Company Number: US-SA-2013SA119324

PATIENT
  Sex: 0
  Weight: 6.6 kg

DRUGS (1)
  1. CEREZYME [Suspect]
     Indication: GAUCHER^S DISEASE
     Dosage: DOSE:60 UNIT(S)/KILOGRAM BODYWEIGHT
     Route: 064

REACTIONS (4)
  - Tonsillectomy [Recovered/Resolved]
  - Exposure during breast feeding [Unknown]
  - Ear tube insertion [Recovered/Resolved]
  - Upper respiratory tract infection [Recovered/Resolved]
